FAERS Safety Report 8162004-5 (Version None)
Quarter: 2012Q1

REPORT INFORMATION
  Report Type: 
  Country: None (occurrence: None)
  Receive Date: 20120224
  Receipt Date: 20111123
  Transmission Date: 20120608
  Serious: No
  Sender: FDA-Public Use
  Company Number: US-BRISTOL-MYERS SQUIBB COMPANY-16245490

PATIENT
  Age: 73 Year
  Sex: Male

DRUGS (3)
  1. GLYBURIDE [Suspect]
  2. METFORMIN HCL [Suspect]
  3. VICTOZA [Suspect]

REACTIONS (4)
  - BLOOD GLUCOSE DECREASED [None]
  - FLATULENCE [None]
  - DYSPEPSIA [None]
  - ERUCTATION [None]
